FAERS Safety Report 10891891 (Version 3)
Quarter: 2015Q1

REPORT INFORMATION
  Report Type: Spontaneous
  Country: US (occurrence: US)
  Receive Date: 20150306
  Receipt Date: 20150326
  Transmission Date: 20150721
  Serious: Yes (Other)
  Sender: FDA-Public Use
  Company Number: US-BAYER-2015-029879

PATIENT
  Age: 52 Year
  Sex: Female

DRUGS (1)
  1. CIPRO [Suspect]
     Active Substance: CIPROFLOXACIN HYDROCHLORIDE
     Indication: URINARY TRACT INFECTION
     Dosage: 500 MG, BID
     Route: 048
     Dates: start: 20150126

REACTIONS (12)
  - Hypoaesthesia [Unknown]
  - Incorrect drug administration duration [Unknown]
  - Urinary incontinence [Unknown]
  - Hypoaesthesia [Unknown]
  - Gastrointestinal motility disorder [Unknown]
  - Pain [None]
  - Pyrexia [None]
  - Genital hypoaesthesia [Unknown]
  - Tic [Unknown]
  - Feeling abnormal [Unknown]
  - Nerve injury [Unknown]
  - Headache [None]

NARRATIVE: CASE EVENT DATE: 2015
